FAERS Safety Report 5061686-4 (Version None)
Quarter: 2006Q3

REPORT INFORMATION
  Report Type: 
  Country: None (occurrence: None)
  Receive Date: 20060726
  Receipt Date: 20060710
  Transmission Date: 20061208
  Serious: Yes (Other)
  Sender: FDA-Public Use
  Company Number: PHEH2006US08905

PATIENT
  Age: 44 Year
  Sex: Female

DRUGS (1)
  1. LAMISIL [Suspect]
     Dosage: 250 MG, QD
     Route: 048
     Dates: start: 20050712, end: 20051001

REACTIONS (1)
  - CATARACT [None]
